FAERS Safety Report 14406364 (Version 1)
Quarter: 2018Q1

REPORT INFORMATION
  Report Type: Report from Study
  Country: IT (occurrence: IT)
  Receive Date: 20180118
  Receipt Date: 20180118
  Transmission Date: 20180509
  Serious: Yes (Other)
  Sender: FDA-Public Use
  Company Number: IT-GLAXOSMITHKLINE-IT2018GSK008048

PATIENT
  Sex: Female

DRUGS (1)
  1. BELIMUMAB [Suspect]
     Active Substance: BELIMUMAB
     Indication: SYSTEMIC LUPUS ERYTHEMATOSUS
     Dosage: UNK
     Dates: start: 201404

REACTIONS (5)
  - Product use issue [Unknown]
  - SLE arthritis [Unknown]
  - Systemic lupus erythematosus [Unknown]
  - Systemic lupus erythematosus rash [Unknown]
  - Lupus nephritis [Unknown]
